FAERS Safety Report 9821038 (Version 1)
Quarter: 2013Q4

REPORT INFORMATION
  Report Type: Spontaneous
  Country: US (occurrence: None)
  Receive Date: 20131028
  Receipt Date: 20131028
  Transmission Date: 20140711
  Serious: Yes (Other)
  Sender: FDA-Public Use
  Company Number: 2013US001254

PATIENT
  Age: 67 Year
  Sex: Male
  Weight: 71.2 kg

DRUGS (10)
  1. ICLUSIG [Suspect]
     Indication: CHRONIC MYELOID LEUKAEMIA
     Route: 048
     Dates: start: 20130128, end: 20130202
  2. CALCIUM (CALCIUM) [Concomitant]
  3. YEAST (YEAST) [Concomitant]
  4. CO-ENZYME Q10 (UBIDECARENONE) [Concomitant]
  5. MAGNESIUM (MAGNESIUM) [Concomitant]
  6. STRONTIUM (STRONTIUM) [Concomitant]
  7. LEXAPRO (ESCITALOPRAM OXALATE) [Concomitant]
  8. WELLBUTRIN (BUPROPION HYDROCHLORIDE) [Concomitant]
  9. VITAMIN B3 (NICOTINAMIDE) [Concomitant]
  10. NIACINAMIDE (NIACINAMIDE) [Concomitant]

REACTIONS (1)
  - Pancreatitis [None]
